FAERS Safety Report 8616328-5 (Version None)
Quarter: 2012Q3

REPORT INFORMATION
  Report Type: 
  Country: None (occurrence: None)
  Receive Date: 20120823
  Receipt Date: 20120815
  Transmission Date: 20120928
  Serious: Yes (Death, Hospitalization)
  Sender: FDA-Public Use
  Company Number: VN-BAXTER-2012BAX014821

PATIENT
  Age: 50 Year
  Sex: Female

DRUGS (2)
  1. DIANEAL [Suspect]
     Dosage: 3 BAGS PER DAY
     Route: 033
     Dates: start: 20040927, end: 20120731
  2. DIANEAL [Suspect]
     Dosage: 1 BAG PER DAY
     Route: 033
     Dates: end: 20120731

REACTIONS (1)
  - CEREBROVASCULAR ACCIDENT [None]
